FAERS Safety Report 17429818 (Version 1)
Quarter: 2020Q1

REPORT INFORMATION
  Report Type: Spontaneous
  Country: US (occurrence: US)
  Receive Date: 20200203
  Receipt Date: 20200203
  Transmission Date: 20200409
  Serious: No
  Sender: FDA-Public Use
  Company Number: None

PATIENT
  Age: 42 Year
  Sex: Male
  Weight: 85.95 kg

DRUGS (1)
  1. CYANOCOBALAMIN 1000MCG TAB [Suspect]
     Active Substance: CYANOCOBALAMIN
     Indication: VITAMIN B12 DEFICIENCY
     Dosage: ?          OTHER STRENGTH:MCG;QUANTITY:1 TABLET(S);?
     Route: 048
     Dates: start: 20191015, end: 20200203

REACTIONS (3)
  - Product substitution issue [None]
  - Product size issue [None]
  - Product colour issue [None]

NARRATIVE: CASE EVENT DATE: 20200203
